FAERS Safety Report 9705749 (Version 1)
Quarter: 2013Q4

REPORT INFORMATION
  Report Type: Spontaneous
  Country: US (occurrence: US)
  Receive Date: 20131122
  Receipt Date: 20131122
  Transmission Date: 20140711
  Serious: No
  Sender: FDA-Public Use
  Company Number: US-GILEAD-2008-0017890

PATIENT
  Sex: Male
  Weight: 78.92 kg

DRUGS (12)
  1. LETAIRIS [Suspect]
     Indication: PULMONARY ARTERIAL HYPERTENSION
     Route: 048
     Dates: start: 20080619
  2. TORSEMIDE [Concomitant]
     Route: 048
  3. MULTIVITAMIN [Concomitant]
     Route: 048
  4. ASPIRIN [Concomitant]
     Route: 048
  5. REVATIO [Concomitant]
     Route: 048
  6. PRILOSEC [Concomitant]
     Route: 048
  7. BONIVA [Concomitant]
     Dosage: AS DIRECTED
     Route: 048
  8. ZOCOR [Concomitant]
     Dosage: AS DIRECTED
     Route: 048
  9. PREDNISONE [Concomitant]
     Dosage: AS DIRECTED
     Route: 048
  10. METFORMIN [Concomitant]
     Dosage: AS DIRECTED
     Route: 048
  11. POTASSIUM [Concomitant]
     Dosage: AS DIRECTED
     Route: 048
  12. BYETTA [Concomitant]
     Dosage: AS DIRECTED
     Route: 058

REACTIONS (1)
  - Joint swelling [Unknown]
